FAERS Safety Report 14244019 (Version 1)
Quarter: 2017Q4

REPORT INFORMATION
  Report Type: Spontaneous
  Country: US (occurrence: US)
  Receive Date: 20171201
  Receipt Date: 20171201
  Transmission Date: 20180321
  Serious: No
  Sender: FDA-Public Use
  Company Number: US-009507513-1711USA013974

PATIENT
  Sex: Female

DRUGS (1)
  1. ASMANEX HFA [Suspect]
     Active Substance: MOMETASONE FUROATE
     Indication: ASTHMA
     Dosage: UNK
     Dates: start: 2017

REACTIONS (4)
  - Respiratory tract congestion [Unknown]
  - Product quality issue [Unknown]
  - Incorrect dose administered [Unknown]
  - Anger [Unknown]

NARRATIVE: CASE EVENT DATE: 2017
